FAERS Safety Report 8346558-1 (Version None)
Quarter: 2012Q2

REPORT INFORMATION
  Report Type: 
  Country: None (occurrence: None)
  Receive Date: 20120509
  Receipt Date: 20120430
  Transmission Date: 20120825
  Serious: Yes (Hospitalization, Other)
  Sender: FDA-Public Use
  Company Number: PHHY2012FR037892

PATIENT
  Sex: Female
  Weight: 145 kg

DRUGS (11)
  1. MAGNE B6 [Concomitant]
     Dosage: UNK UKN, UNK
  2. LEVOTHYROXINE SODIUM [Suspect]
     Indication: HYPOTHYROIDISM
     Dosage: 35 UG, UNK
     Route: 048
  3. DIETHYL-STILBESTROL TAB [Suspect]
     Dosage: UNK UKN, UNK
  4. VITAMIN D [Concomitant]
     Dosage: UNK UKN, UNK
  5. AMOXICILLIN AND CLAVULANATE POTASSIUM [Concomitant]
     Dosage: UNK UKN, UNK
  6. TEGRETOL [Suspect]
     Indication: EPILEPSY
     Dosage: 800 MG, DAILY
     Route: 048
  7. DEPAKENE [Suspect]
     Indication: EPILEPSY
     Dosage: 2000 MG, DAILY
     Route: 048
  8. ELEVIT [Concomitant]
     Dosage: UNK UKN, UNK
  9. LEVOTHYROXINE SODIUM [Suspect]
     Dosage: 50 UG, UNK
     Route: 048
  10. ALDOMET [Concomitant]
     Dosage: 1500 MG, DAILY
  11. ALISKIREN [Concomitant]
     Indication: HYPERTENSION
     Dosage: 100 MG, DAILY

REACTIONS (4)
  - BLOOD PRESSURE DIASTOLIC DECREASED [None]
  - GESTATIONAL DIABETES [None]
  - HYPERTENSION [None]
  - MATERNAL EXPOSURE DURING PREGNANCY [None]
